FAERS Safety Report 5722551-X (Version None)
Quarter: 2008Q2

REPORT INFORMATION
  Report Type: 
  Country: None (occurrence: None)
  Receive Date: 20080429
  Receipt Date: 20071129
  Transmission Date: 20081010
  Serious: No
  Sender: FDA-Public Use
  Company Number: US-ASTRAZENECA-2007UW23427

PATIENT
  Age: 58 Year
  Sex: Female
  Weight: 57.6 kg

DRUGS (9)
  1. NEXIUM [Suspect]
     Indication: GASTROOESOPHAGEAL REFLUX DISEASE
     Route: 048
  2. LIBRAX [Concomitant]
  3. ELAVIL [Concomitant]
  4. SYNTHROID [Concomitant]
  5. EVISTA [Concomitant]
  6. ZOMETA [Concomitant]
  7. M.V.I. [Concomitant]
  8. CALTRATE + D [Concomitant]
  9. FIBER [Concomitant]

REACTIONS (6)
  - ABDOMINAL PAIN [None]
  - DRY MOUTH [None]
  - DYSPHONIA [None]
  - FREQUENT BOWEL MOVEMENTS [None]
  - GASTROOESOPHAGEAL REFLUX DISEASE [None]
  - GRANULOMA [None]
